FAERS Safety Report 12525269 (Version 1)
Quarter: 2016Q3

REPORT INFORMATION
  Report Type: Spontaneous
  Country: GB (occurrence: GB)
  Receive Date: 20160704
  Receipt Date: 20160704
  Transmission Date: 20161109
  Serious: Yes (Other)
  Sender: FDA-Public Use
  Company Number: GB-PFIZER INC-2016317553

PATIENT
  Age: 33 Year
  Sex: Male
  Weight: 67.4 kg

DRUGS (3)
  1. DOXYCYCLINE MONOHYDRATE [Suspect]
     Active Substance: DOXYCYCLINE
     Indication: BACTERIAL PROSTATITIS
     Dosage: 200 MG, DAILY
     Route: 048
     Dates: start: 20160527, end: 20160527
  2. DOXYCYCLINE MONOHYDRATE [Suspect]
     Active Substance: DOXYCYCLINE
     Dosage: 100 MG, DAILY
     Route: 048
     Dates: start: 20160528, end: 20160529
  3. EVIPLERA [Concomitant]
     Active Substance: EMTRICITABINE\RILPIVIRINE\TENOFOVIR DISOPROXIL FUMARATE
     Dosage: UNK

REACTIONS (7)
  - Ototoxicity [Unknown]
  - Hypoacusis [Unknown]
  - Ear pain [Unknown]
  - Coordination abnormal [Unknown]
  - Hyperacusis [Not Recovered/Not Resolved]
  - Ear discomfort [Unknown]
  - Balance disorder [Recovering/Resolving]

NARRATIVE: CASE EVENT DATE: 20160528
